FAERS Safety Report 9340562 (Version 3)
Quarter: 2013Q4

REPORT INFORMATION
  Report Type: Spontaneous
  Country: US (occurrence: US)
  Receive Date: 20130610
  Receipt Date: 20131118
  Transmission Date: 20140711
  Serious: Yes (Death, Other)
  Sender: FDA-Public Use
  Company Number: US-INCYTE CORPORATION-2013IN001195

PATIENT
  Sex: 0

DRUGS (15)
  1. JAKAFI [Suspect]
     Indication: MYELOFIBROSIS
     Dosage: 5 MG, BID
     Route: 048
     Dates: start: 201209
  2. JAKAFI [Suspect]
     Dosage: 5 MG, BID
     Route: 048
     Dates: start: 20130115, end: 20130507
  3. TYLENOL EXTRA STRENGTH [Concomitant]
     Dosage: 500 MG EVERY 6 HOURS AS NEEDED
     Route: 048
  4. PEPCID [Concomitant]
     Dosage: 20 MG, BID
     Route: 048
  5. ZOCOR [Concomitant]
     Dosage: 1 DF, DAILY EVERY EVENING
     Route: 048
  6. DESYREL [Concomitant]
     Indication: INSOMNIA
     Dosage: 1 DF, DAILY AT BEDTIME
  7. VOLTAREN [Concomitant]
     Indication: PAIN
     Dosage: I2 G, QID
     Route: 061
  8. ATROVENT [Concomitant]
     Dosage: 2.5 ML, QID, VIA NEBULIZER
     Route: 055
  9. BUMEX [Concomitant]
     Indication: CARDIAC FAILURE CONGESTIVE
     Dosage: 1 MG, BID, AS NEEDED
     Route: 048
  10. ATIVAN [Concomitant]
     Indication: ANXIETY
     Dosage: TID, PRN
  11. MIRALAX [Concomitant]
     Indication: CONSTIPATION
     Dosage: 1 CAPFUL DAILY
     Route: 048
  12. ALLOPURINOL [Concomitant]
     Indication: BLOOD URIC ACID INCREASED
     Dosage: 2 DF, QD
     Route: 048
  13. LACTULOSE [Concomitant]
     Indication: CONSTIPATION
     Dosage: 20 MG PACKET, UNK
  14. SILVER SULFADIAZINE [Concomitant]
     Dosage: 1 %, QD
     Route: 061
  15. LEVALBUTEROL HYDROCHLORIDE [Concomitant]
     Indication: DYSPNOEA
     Dosage: 0.63MG/3 ML (1 AMPULE) EVERY FOUR HOUS AS NEEDED
     Route: 055

REACTIONS (9)
  - Death [Fatal]
  - General physical health deterioration [Unknown]
  - Fatigue [Unknown]
  - Constipation [Unknown]
  - Glomerular filtration rate decreased [Unknown]
  - Oedema peripheral [Unknown]
  - Abdominal distension [Unknown]
  - Thrombocytopenia [Unknown]
  - Anaemia [Unknown]
